FAERS Safety Report 6699919-0 (Version None)
Quarter: 2010Q2

REPORT INFORMATION
  Report Type: 
  Country: None (occurrence: None)
  Receive Date: 20100428
  Receipt Date: 20100414
  Transmission Date: 20101027
  Serious: Yes (Hospitalization)
  Sender: FDA-Public Use
  Company Number: GB-RANBAXY-2009RR-28440

PATIENT
  Age: 68 Year
  Sex: Male

DRUGS (4)
  1. SIMVASTATIN [Suspect]
     Indication: BLOOD CHOLESTEROL INCREASED
     Dosage: 40 MG, QD
     Route: 048
     Dates: start: 20020101, end: 20080101
  2. FUSIDIC ACID [Suspect]
     Indication: INFECTION
     Dosage: 500 MG, TID
     Route: 048
     Dates: start: 20081001, end: 20081001
  3. FLOXACILLIN SODIUM [Concomitant]
     Indication: STAPHYLOCOCCAL INFECTION
     Dosage: 500 MG, QID
     Route: 065
  4. ATENOLOL [Concomitant]
     Indication: BLOOD CHOLESTEROL INCREASED
     Dosage: 50 MG, QD
     Route: 048
     Dates: start: 20020101

REACTIONS (4)
  - ANKLE FRACTURE [None]
  - DRUG INTERACTION [None]
  - RHABDOMYOLYSIS [None]
  - STAPHYLOCOCCAL INFECTION [None]
